FAERS Safety Report 10240869 (Version 2)
Quarter: 2014Q2

REPORT INFORMATION
  Report Type: Report from Study
  Country: IN (occurrence: IN)
  Receive Date: 20140617
  Receipt Date: 20140617
  Transmission Date: 20141212
  Serious: Yes (Death)
  Sender: FDA-Public Use
  Company Number: PHHY2014IN001441

PATIENT
  Age: 43 Year
  Sex: Male

DRUGS (3)
  1. GLIVEC [Suspect]
     Indication: CHRONIC MYELOID LEUKAEMIA
     Dosage: UNK UKN, UNK
     Route: 048
  2. GLIVEC [Suspect]
     Dosage: 400 MG, UNK
     Route: 048
  3. GLIVEC [Suspect]
     Dosage: 600 MG, UNK

REACTIONS (2)
  - Death [Fatal]
  - No therapeutic response [Unknown]
